FAERS Safety Report 7993146-2 (Version None)
Quarter: 2011Q4

REPORT INFORMATION
  Report Type: 
  Country: None (occurrence: None)
  Receive Date: 20111219
  Receipt Date: 20110103
  Transmission Date: 20120403
  Serious: No
  Sender: FDA-Public Use
  Company Number: US-ASTRAZENECA-2011SE00154

PATIENT
  Age: 87 Year
  Sex: Female

DRUGS (2)
  1. MEDICATION FOR GERD [Concomitant]
  2. CRESTOR [Suspect]
     Indication: HYPERCHOLESTEROLAEMIA
     Route: 048
     Dates: end: 20101201

REACTIONS (2)
  - BONE PAIN [None]
  - NAUSEA [None]
